FAERS Safety Report 4377400-1 (Version None)
Quarter: 2004Q2

REPORT INFORMATION
  Report Type: 
  Country: None (occurrence: None)
  Receive Date: 20040609
  Receipt Date: 20040420
  Transmission Date: 20050107
  Serious: No
  Sender: FDA-Public Use
  Company Number: 2004211439US

PATIENT

DRUGS (1)
  1. BEXTRA [Suspect]
     Dosage: 20 MG, ORAL
     Route: 048

REACTIONS (2)
  - GLOSSODYNIA [None]
  - MOUTH ULCERATION [None]
